FAERS Safety Report 18648404 (Version 3)
Quarter: 2021Q1

REPORT INFORMATION
  Report Type: Spontaneous
  Country: AU (occurrence: AU)
  Receive Date: 20201222
  Receipt Date: 20210309
  Transmission Date: 20210419
  Serious: Yes (Hospitalization)
  Sender: FDA-Public Use
  Company Number: AU-VERTEX PHARMACEUTICALS-2020-025156

PATIENT
  Age: 18 Year
  Sex: Female

DRUGS (12)
  1. CREON [Concomitant]
     Active Substance: PANCRELIPASE AMYLASE\PANCRELIPASE LIPASE\PANCRELIPASE PROTEASE
     Dosage: FROM 18 MONTHS
  2. HYDROCORTISONE. [Concomitant]
     Active Substance: HYDROCORTISONE
     Dosage: FROM 18 MONTHS
     Route: 048
  3. SYMDEKO [Suspect]
     Active Substance: IVACAFTOR\TEZACAFTOR
     Indication: CYSTIC FIBROSIS
     Dosage: 1 TABLET ON MONDAY/WEEK
     Route: 048
     Dates: start: 20200824
  4. SYMDEKO [Suspect]
     Active Substance: IVACAFTOR\TEZACAFTOR
     Dosage: 2 TABLET PER WEEK
     Route: 048
  5. SALBUTAMOL [Concomitant]
     Active Substance: ALBUTEROL
     Dosage: FROM 18 MONTHS
  6. TRANEXAMIC ACID. [Concomitant]
     Active Substance: TRANEXAMIC ACID
     Dosage: FROM 18 MONTHS
  7. OMEPRAZOLE. [Concomitant]
     Active Substance: OMEPRAZOLE
     Dosage: FROM 18 MONTHS
  8. INSULIN [Concomitant]
     Active Substance: INSULIN NOS
     Dosage: FROM 18 MONTHS
  9. OMALIZUMAB. [Concomitant]
     Active Substance: OMALIZUMAB
     Dosage: FROM 18 MONTHS
  10. VITAMIN K [PHYTOMENADIONE] [Concomitant]
     Dosage: FROM 18 MONTHS
  11. PULMOZYME [Concomitant]
     Active Substance: DORNASE ALFA
     Dosage: FROM 18 MONTHS
  12. ITRACONAZOLE. [Concomitant]
     Active Substance: ITRACONAZOLE
     Dosage: FROM 18 MONTHS

REACTIONS (4)
  - Rhinovirus infection [Unknown]
  - Aspergillus infection [Unknown]
  - Infective pulmonary exacerbation of cystic fibrosis [Recovered/Resolved]
  - Achromobacter infection [Unknown]

NARRATIVE: CASE EVENT DATE: 20201208
